FAERS Safety Report 19217367 (Version 1)
Quarter: 2021Q2

REPORT INFORMATION
  Report Type: Spontaneous
  Country: US (occurrence: US)
  Receive Date: 20210505
  Receipt Date: 20210505
  Transmission Date: 20210717
  Serious: Yes (Other)
  Sender: FDA-Public Use
  Company Number: None

PATIENT
  Age: 9 Year
  Sex: Male
  Weight: 57.2 kg

DRUGS (6)
  1. GUANFACINE. [Suspect]
     Active Substance: GUANFACINE
     Indication: ATTENTION DEFICIT HYPERACTIVITY DISORDER
     Route: 048
  2. RISPERIDONE 0.25MG BID [Concomitant]
     Dates: start: 20210326, end: 20210410
  3. SEROQUEL [Suspect]
     Active Substance: QUETIAPINE FUMARATE
  4. CONCERTA 27MG DAILY [Concomitant]
     Dates: start: 20210323, end: 20210505
  5. SERTRALINE [Concomitant]
     Active Substance: SERTRALINE HYDROCHLORIDE
     Dates: start: 20210326, end: 20210412
  6. CONCERTA [Suspect]
     Active Substance: METHYLPHENIDATE HYDROCHLORIDE

REACTIONS (10)
  - Depression [None]
  - Tremor [None]
  - Product commingling [None]
  - Suicidal ideation [None]
  - Dyskinesia [None]
  - Muscle tightness [None]
  - Dystonia [None]
  - Anxiety [None]
  - Bruxism [None]
  - Product contamination [None]

NARRATIVE: CASE EVENT DATE: 20210411
